FAERS Safety Report 16942920 (Version 1)
Quarter: 2019Q4

REPORT INFORMATION
  Report Type: Spontaneous
  Country: US (occurrence: US)
  Receive Date: 20191021
  Receipt Date: 20191021
  Transmission Date: 20200122
  Serious: Yes (Hospitalization)
  Sender: FDA-Public Use
  Company Number: US-BAUSCH-BL-2019-057676

PATIENT
  Sex: Male

DRUGS (2)
  1. DOXYCYLINE [Suspect]
     Active Substance: DOXYCYCLINE
     Dosage: ON A COURSE PRIOR TO ADMISSION
     Route: 065
  2. DOXYCYLINE [Suspect]
     Active Substance: DOXYCYCLINE
     Indication: OSTEOMYELITIS CHRONIC
     Dosage: RECURRENT DOXYCYCLINE USE
     Route: 065

REACTIONS (2)
  - Drug-induced liver injury [Recovered/Resolved]
  - Pancreatitis acute [Recovering/Resolving]
